FAERS Safety Report 12048432 (Version 1)
Quarter: 2016Q1

REPORT INFORMATION
  Report Type: Report from Study
  Country: US (occurrence: US)
  Receive Date: 20160208
  Receipt Date: 20160208
  Transmission Date: 20160526
  Serious: No
  Sender: FDA-Public Use
  Company Number: GXBR2016US000618

PATIENT
  Age: 38 Year
  Sex: Female

DRUGS (10)
  1. LORAZEPAM ACTAVIS 2MG [Suspect]
     Active Substance: LORAZEPAM
     Indication: ANXIETY
     Dosage: 2 MG, PRN
     Route: 048
     Dates: start: 201110
  2. MULTI VITAMIN [Concomitant]
     Active Substance: VITAMINS
     Indication: ROUTINE HEALTH MAINTENANCE
     Dosage: UNK DF, UNK
     Route: 065
     Dates: start: 20120510
  3. CITALOPRAM [Concomitant]
     Active Substance: CITALOPRAM HYDROBROMIDE
     Indication: PRODUCT USED FOR UNKNOWN INDICATION
     Dosage: 40 MG, QD
     Route: 065
     Dates: start: 201110, end: 20130315
  4. HYDROCODONE BITARTRATE AND ACETAMINOPHEN [Suspect]
     Active Substance: ACETAMINOPHEN\HYDROCODONE BITARTRATE
     Dosage: UNK DF, UNK
     Route: 048
     Dates: start: 20130315
  5. IRON SUPPLEMENTS [Concomitant]
     Active Substance: IRON
     Indication: ANAEMIA
     Dosage: UNK DF, UNK
     Route: 065
  6. HYDROCODONE BITARTRATE AND ACETAMINOPHEN [Suspect]
     Active Substance: ACETAMINOPHEN\HYDROCODONE BITARTRATE
     Indication: NECK PAIN
     Dosage: UNK DF, UNK
     Route: 048
     Dates: start: 20130101, end: 20130114
  7. CLOTRIMAZOLE. [Suspect]
     Active Substance: CLOTRIMAZOLE
     Indication: RASH
     Dosage: UNK DF, UNK
     Route: 061
     Dates: start: 201301
  8. SIMILASAN FOR INFLAMMATION OF THE MOUTH AND THROAT [Concomitant]
     Active Substance: HOMEOPATHICS
     Indication: DRY EYE
     Dosage: UNK DF, UNK
     Route: 065
     Dates: start: 20120528
  9. ARTIFICIAL TEARS                   /00880201/ [Concomitant]
     Active Substance: POLYVINYL ALCOHOL\POVIDONE
     Indication: DRY EYE
     Dosage: UNK DF, UNK
     Dates: start: 20120528
  10. FISH OIL [Concomitant]
     Active Substance: FISH OIL
     Indication: ROUTINE HEALTH MAINTENANCE
     Dosage: UNK DF, UNK
     Route: 065
     Dates: start: 201301

REACTIONS (1)
  - Maternal exposure during pregnancy [Unknown]
